FAERS Safety Report 5000719-8 (Version None)
Quarter: 2006Q2

REPORT INFORMATION
  Report Type: 
  Country: None (occurrence: None)
  Receive Date: 20060512
  Receipt Date: 20060502
  Transmission Date: 20061013
  Serious: Yes (Hospitalization)
  Sender: FDA-Public Use
  Company Number: US-AMGEN-US172574

PATIENT
  Sex: Male
  Weight: 83.5 kg

DRUGS (7)
  1. NEULASTA [Suspect]
     Indication: CHEMOTHERAPY
     Route: 058
     Dates: start: 20060308, end: 20060308
  2. LEUSTATIN [Concomitant]
     Route: 065
     Dates: start: 20060307
  3. ZOLOFT [Concomitant]
  4. PREDNISONE TAB [Concomitant]
  5. PERIACTIN [Concomitant]
  6. PERCOCET [Concomitant]
  7. DYAZIDE [Concomitant]

REACTIONS (6)
  - ERYTHEMA [None]
  - ERYTHEMA MULTIFORME [None]
  - PYREXIA [None]
  - SKIN BURNING SENSATION [None]
  - SWELLING FACE [None]
  - TONGUE BLISTERING [None]
